FAERS Safety Report 17858361 (Version 2)
Quarter: 2020Q2

REPORT INFORMATION
  Report Type: Report from Study
  Country: None (occurrence: US)
  Receive Date: 20200604
  Receipt Date: 20200605
  Transmission Date: 20200714
  Serious: No
  Sender: FDA-Public Use
  Company Number: US-US WORLDMEDS, LLC-USW201907-001282

PATIENT
  Age: 86 Year
  Sex: Male
  Weight: 72.5 kg

DRUGS (7)
  1. LOSARTAN. [Concomitant]
     Active Substance: LOSARTAN
  2. TIGAN [Concomitant]
     Active Substance: TRIMETHOBENZAMIDE HYDROCHLORIDE
  3. RANITIDINE. [Concomitant]
     Active Substance: RANITIDINE
  4. AMLODIPINE [Concomitant]
     Active Substance: AMLODIPINE BESYLATE
  5. ACETYLSALICYLIC ACID/ASA [Concomitant]
  6. CARBIDOPA/LEVODOPA [Concomitant]
     Active Substance: CARBIDOPA\LEVODOPA
     Dosage: 25 -100 MG
  7. APOKYN [Suspect]
     Active Substance: APOMORPHINE HYDROCHLORIDE
     Indication: PARKINSON^S DISEASE
     Dosage: 30MG/3ML
     Route: 058
     Dates: start: 20190618

REACTIONS (1)
  - Injection site bruising [Recovering/Resolving]

NARRATIVE: CASE EVENT DATE: 20190708
